FAERS Safety Report 4614094-1 (Version None)
Quarter: 2005Q1

REPORT INFORMATION
  Report Type: 
  Country: None (occurrence: None)
  Receive Date: 20050315
  Receipt Date: 20050302
  Transmission Date: 20050727
  Serious: Yes (Other)
  Sender: FDA-Public Use
  Company Number: 212519

PATIENT
  Age: 74 Year
  Sex: Female

DRUGS (5)
  1. RITUXAN [Suspect]
     Indication: DRUG USE FOR UNKNOWN INDICATION
     Dates: start: 20041001, end: 20041101
  2. PEPCID [Concomitant]
  3. VITAMINS (VITAMINS NOS) [Concomitant]
  4. LEVAQUIN [Concomitant]
  5. SYNTHROID [Concomitant]

REACTIONS (3)
  - BLOOD IMMUNOGLOBULIN M INCREASED [None]
  - HAEMOGLOBIN DECREASED [None]
  - HEART RATE INCREASED [None]
